FAERS Safety Report 10705515 (Version 1)
Quarter: 2015Q1

REPORT INFORMATION
  Report Type: Spontaneous
  Country: US (occurrence: US)
  Receive Date: 20150112
  Receipt Date: 20150112
  Transmission Date: 20150721
  Serious: No
  Sender: FDA-Public Use
  Company Number: US-ASTRAZENECA-2014SE90506

PATIENT
  Age: 23391 Day
  Sex: Male
  Weight: 81.6 kg

DRUGS (8)
  1. HYDROCORDONE [Concomitant]
     Route: 054
  2. VALTREX [Concomitant]
     Active Substance: VALACYCLOVIR HYDROCHLORIDE
     Indication: ORAL HERPES
     Route: 048
  3. XANTAC [Concomitant]
     Indication: GASTROOESOPHAGEAL REFLUX DISEASE
     Route: 048
  4. SEROQUEL [Suspect]
     Active Substance: QUETIAPINE FUMARATE
     Indication: MANIA
     Route: 048
     Dates: start: 20141113, end: 20141113
  5. ASPIRIN. [Concomitant]
     Active Substance: ASPIRIN
     Indication: MYOCARDIAL INFARCTION
     Route: 048
  6. CLONIPINE [Concomitant]
     Active Substance: CLONAZEPAM
     Indication: ANXIETY
     Route: 048
  7. PROBIOTIC SUPPLEMENT [Concomitant]
     Indication: GASTROOESOPHAGEAL REFLUX DISEASE
     Route: 048
  8. DEXTENT [Concomitant]
     Indication: GASTROOESOPHAGEAL REFLUX DISEASE
     Route: 048

REACTIONS (8)
  - Palpitations [Unknown]
  - Paranoia [Unknown]
  - Nightmare [Unknown]
  - Psychomotor hyperactivity [Unknown]
  - Derealisation [Unknown]
  - Tremor [Unknown]
  - Obsessive thoughts [Unknown]
  - Muscle twitching [Unknown]

NARRATIVE: CASE EVENT DATE: 20141113
